FAERS Safety Report 7492628-X (Version None)
Quarter: 2011Q2

REPORT INFORMATION
  Report Type: 
  Country: None (occurrence: None)
  Receive Date: 20110519
  Receipt Date: 20110511
  Transmission Date: 20111010
  Serious: Yes (Hospitalization, Other)
  Sender: FDA-Public Use
  Company Number: CA-ELI_LILLY_AND_COMPANY-CA201105003795

PATIENT
  Age: 90 Year
  Sex: Female

DRUGS (10)
  1. VIT B12 [Concomitant]
     Dosage: UNK, UNKNOWN
     Route: 065
  2. CRESTOR [Concomitant]
     Dosage: UNK, UNKNOWN
     Route: 065
  3. VITAMIN D [Concomitant]
     Dosage: UNK, UNKNOWN
     Route: 065
  4. RABEPRAZOLE SODIUM [Concomitant]
     Dosage: UNK, UNKNOWN
     Route: 065
  5. SOFLAX [Concomitant]
     Dosage: UNK, UNKNOWN
     Route: 065
  6. ENTROPHEN [Concomitant]
     Dosage: UNK, UNKNOWN
     Route: 065
  7. FORTEO [Suspect]
     Indication: OSTEOPOROSIS
     Dosage: 20 UG, QD
     Route: 058
     Dates: start: 20100413
  8. CALCIUM CARBONATE [Concomitant]
     Dosage: UNK, UNKNOWN
     Route: 065
  9. RAMIPRIL [Concomitant]
     Dosage: UNK, UNKNOWN
     Route: 065
  10. ARICEPT [Concomitant]
     Dosage: UNK, UNKNOWN
     Route: 065

REACTIONS (2)
  - HIP FRACTURE [None]
  - FALL [None]
